FAERS Safety Report 13918630 (Version 1)
Quarter: 2017Q3

REPORT INFORMATION
  Report Type: Spontaneous
  Country: US (occurrence: US)
  Receive Date: 20170829
  Receipt Date: 20170829
  Transmission Date: 20171127
  Serious: Yes (Other)
  Sender: FDA-Public Use
  Company Number: US-INTERNATIONAL MEDICATION SYSTEMS, LIMITED-2025279

PATIENT
  Age: 29 Year
  Sex: Female
  Weight: 56.82 kg

DRUGS (4)
  1. EPINEPHRINE. [Suspect]
     Active Substance: EPINEPHRINE
     Indication: VASOCONSTRICTION
     Dates: start: 20170719, end: 20170719
  2. LIDOCAINE. [Suspect]
     Active Substance: LIDOCAINE
     Dates: start: 20170719, end: 20170719
  3. SODIUM BICARBONATE. [Suspect]
     Active Substance: SODIUM BICARBONATE
     Dates: start: 20170719, end: 20170719
  4. SYNTHROID [Concomitant]
     Active Substance: LEVOTHYROXINE SODIUM

REACTIONS (1)
  - Ecchymosis [Unknown]

NARRATIVE: CASE EVENT DATE: 20170719
